FAERS Safety Report 19685205 (Version 1)
Quarter: 2021Q3

REPORT INFORMATION
  Report Type: Spontaneous
  Country: US (occurrence: US)
  Receive Date: 20210810
  Receipt Date: 20210810
  Transmission Date: 20211014
  Serious: No
  Sender: FDA-Public Use
  Company Number: None

PATIENT
  Age: 49 Year
  Sex: Female
  Weight: 47.63 kg

DRUGS (1)
  1. STELARA [Suspect]
     Active Substance: USTEKINUMAB
     Indication: COLITIS ULCERATIVE
     Dosage: INJECT 90MG SUBCUTANEOUSLY ON DAY 0 AND DAY 28 AS DIRECTED
     Route: 058
     Dates: start: 202008

REACTIONS (1)
  - Urinary tract infection [None]
